FAERS Safety Report 5731867-2 (Version None)
Quarter: 2008Q2

REPORT INFORMATION
  Report Type: 
  Country: None (occurrence: None)
  Receive Date: 20080508
  Receipt Date: 20080501
  Transmission Date: 20081010
  Serious: Yes (Other)
  Sender: FDA-Public Use
  Company Number: US-ROCHE-553523

PATIENT
  Age: 93 Year
  Sex: Female

DRUGS (1)
  1. TAMIFLU [Suspect]
     Route: 065
     Dates: start: 20080307, end: 20080312

REACTIONS (4)
  - CRYING [None]
  - DEPRESSION [None]
  - FEAR [None]
  - PYREXIA [None]
